FAERS Safety Report 18707572 (Version 1)
Quarter: 2021Q1

REPORT INFORMATION
  Report Type: Not Available
  Country: US (occurrence: US)
  Receive Date: 20210106
  Receipt Date: 20210106
  Transmission Date: 20210419
  Serious: No
  Sender: FDA-Public Use
  Company Number: US-NEUROCRINE BIOSCIENCES INC.-2020NBI04750

PATIENT
  Age: 39 Year
  Sex: Male

DRUGS (2)
  1. INGREZZA [Suspect]
     Active Substance: VALBENAZINE
     Dosage: DOSE DECREASED
     Route: 048
     Dates: start: 202012
  2. INGREZZA [Suspect]
     Active Substance: VALBENAZINE
     Indication: CHOREA
     Route: 048
     Dates: end: 202012

REACTIONS (2)
  - Off label use [Unknown]
  - Somnolence [Not Recovered/Not Resolved]

NARRATIVE: CASE EVENT DATE: 20201219
